FAERS Safety Report 24210343 (Version 1)
Quarter: 2024Q3

REPORT INFORMATION
  Report Type: Spontaneous
  Country: GB (occurrence: GB)
  Receive Date: 20240814
  Receipt Date: 20240814
  Transmission Date: 20241016
  Serious: Yes (Hospitalization, Other)
  Sender: FERRING
  Company Number: None

PATIENT

DRUGS (2)
  1. DINOPROSTONE [Suspect]
     Active Substance: DINOPROSTONE
     Indication: Labour induction
     Route: 065
     Dates: start: 20240801, end: 20240802
  2. FOLIC ACID [Concomitant]
     Active Substance: FOLIC ACID
     Indication: Vitamin supplementation

REACTIONS (1)
  - Vulvovaginal swelling [Recovering/Resolving]

NARRATIVE: CASE EVENT DATE: 20240801
